FAERS Safety Report 7411843-4 (Version None)
Quarter: 2011Q2

REPORT INFORMATION
  Report Type: 
  Country: None (occurrence: None)
  Receive Date: 20110413
  Receipt Date: 20110330
  Transmission Date: 20111010
  Serious: Yes (Hospitalization)
  Sender: FDA-Public Use
  Company Number: CA-JNJFOC-20100707544

PATIENT
  Sex: Male

DRUGS (5)
  1. FLAGYL [Concomitant]
     Route: 065
  2. IMURAN [Concomitant]
     Route: 065
  3. REMICADE [Suspect]
     Indication: CROHN'S DISEASE
     Route: 042
  4. REMICADE [Suspect]
     Dosage: 2 INFUSIONS
     Route: 042
  5. CIPRO [Concomitant]

REACTIONS (2)
  - ANAL ABSCESS [None]
  - FISTULA [None]
